FAERS Safety Report 6868034-5 (Version None)
Quarter: 2010Q3

REPORT INFORMATION
  Report Type: 
  Country: None (occurrence: None)
  Receive Date: 20100722
  Receipt Date: 20100722
  Transmission Date: 20110219
  Serious: Yes (Hospitalization)
  Sender: FDA-Public Use
  Company Number: None

PATIENT
  Sex: Female
  Weight: 73.6 kg

DRUGS (3)
  1. BEVACIZUMAB (RHUMAB VEGF) [Suspect]
     Dosage: 375 MG
     Dates: end: 20100712
  2. ELOXATIN [Suspect]
     Dosage: 155 MG
     Dates: end: 20100712
  3. FLUOROURACIL [Suspect]
     Dosage: 5100 MG
     Dates: end: 20100712

REACTIONS (4)
  - CHEST PAIN [None]
  - NAUSEA [None]
  - NECK PAIN [None]
  - THROMBOSIS IN DEVICE [None]
